FAERS Safety Report 18116814 (Version 1)
Quarter: 2020Q3

REPORT INFORMATION
  Report Type: Spontaneous
  Country: GB (occurrence: GB)
  Receive Date: 20200806
  Receipt Date: 20200806
  Transmission Date: 20201103
  Serious: Yes (Other)
  Sender: FDA-Public Use
  Company Number: GB-TEVA-2020-GB-1811930

PATIENT
  Age: 78 Year
  Sex: Male

DRUGS (1)
  1. BOLAMYN [Suspect]
     Active Substance: METFORMIN HYDROCHLORIDE
     Route: 048

REACTIONS (1)
  - Intestinal polyp [Unknown]

NARRATIVE: CASE EVENT DATE: 2020
